FAERS Safety Report 5691876-9 (Version None)
Quarter: 2008Q2

REPORT INFORMATION
  Report Type: 
  Country: None (occurrence: None)
  Receive Date: 20080402
  Receipt Date: 20080402
  Transmission Date: 20081010
  Serious: No
  Sender: FDA-Public Use
  Company Number: None

PATIENT
  Sex: Male
  Weight: 75 kg

DRUGS (2)
  1. HEPARIN [Suspect]
     Dosage: 1-3 ML AFTER NACL IV; X 40 DAYS
     Route: 042
     Dates: start: 20071207
  2. SODIUM CHLORIDE [Suspect]
     Dosage: 5-10 ML BEFORE AND AFTER EACH DOSE IV; X 40 DAYS
     Route: 042
     Dates: start: 20071207

REACTIONS (3)
  - CATHETER RELATED INFECTION [None]
  - PHARMACEUTICAL PRODUCT COMPLAINT [None]
  - SERRATIA INFECTION [None]
